FAERS Safety Report 6434200-6 (Version None)
Quarter: 2009Q4

REPORT INFORMATION
  Report Type: 
  Country: None (occurrence: None)
  Receive Date: 20091110
  Receipt Date: 20090612
  Transmission Date: 20100525
  Serious: No
  Sender: FDA-Public Use
  Company Number: US-ASTRAZENECA-2009SE10012

PATIENT
  Age: 25 Year
  Sex: Female

DRUGS (2)
  1. PRILOSEC OTC [Suspect]
     Dosage: 1 TABLET, 1 ONLY FOR 1 DAY
     Route: 048
     Dates: start: 20090611, end: 20090611
  2. ACIDOPHILUS [Concomitant]
     Dosage: UNKNOWN

REACTIONS (4)
  - BACK PAIN [None]
  - DIZZINESS [None]
  - INAPPROPRIATE SCHEDULE OF DRUG ADMINISTRATION [None]
  - MUSCULOSKELETAL CHEST PAIN [None]
